FAERS Safety Report 9425843 (Version 1)
Quarter: 2013Q3

REPORT INFORMATION
  Report Type: Spontaneous
  Country: US (occurrence: US)
  Receive Date: 20130729
  Receipt Date: 20130729
  Transmission Date: 20140515
  Serious: Yes (Other)
  Sender: FDA-Public Use
  Company Number: US-ELI_LILLY_AND_COMPANY-US201307007358

PATIENT
  Age: 14 Year
  Sex: Male
  Weight: 40.81 kg

DRUGS (1)
  1. HUMALOG LISPRO [Suspect]
     Route: 058

REACTIONS (3)
  - Loss of consciousness [Recovered/Resolved]
  - Blindness transient [Recovered/Resolved]
  - Blood glucose increased [Unknown]
